FAERS Safety Report 6095560-1 (Version None)
Quarter: 2009Q1

REPORT INFORMATION
  Report Type: 
  Country: None (occurrence: None)
  Receive Date: 20090227
  Receipt Date: 20080425
  Transmission Date: 20090719
  Serious: Yes (Other)
  Sender: FDA-Public Use
  Company Number: A0724839A

PATIENT
  Age: 42 Year

DRUGS (4)
  1. LAMICTAL [Suspect]
     Route: 048
     Dates: start: 20080401
  2. PROZAC [Concomitant]
  3. LOPID [Concomitant]
  4. VITAMINS [Concomitant]

REACTIONS (3)
  - EOSINOPHILIA [None]
  - LIVER FUNCTION TEST ABNORMAL [None]
  - TRANSAMINASES INCREASED [None]
